FAERS Safety Report 12493539 (Version 1)
Quarter: 2016Q2

REPORT INFORMATION
  Report Type: Spontaneous
  Country: US (occurrence: US)
  Receive Date: 20160623
  Receipt Date: 20160623
  Transmission Date: 20160815
  Serious: No
  Sender: FDA-Public Use
  Company Number: US-BAYER-2016-110727

PATIENT
  Age: 51 Year
  Sex: Male

DRUGS (1)
  1. LEVITRA [Suspect]
     Active Substance: VARDENAFIL HYDROCHLORIDE TRIHYDRATE
     Dosage: 20 MG, BID
     Route: 048

REACTIONS (5)
  - Intentional overdose [None]
  - Genital hypoaesthesia [None]
  - Erection increased [None]
  - Penis disorder [None]
  - Drug ineffective [None]
